FAERS Safety Report 4531083-6 (Version None)
Quarter: 2004Q4

REPORT INFORMATION
  Report Type: 
  Country: None (occurrence: None)
  Receive Date: 20041201
  Receipt Date: 20041011
  Transmission Date: 20050328
  Serious: Yes (Other)
  Sender: FDA-Public Use
  Company Number: US089095

PATIENT
  Age: 11 Year
  Sex: Male
  Weight: 45.9 kg

DRUGS (5)
  1. ENBREL [Suspect]
     Indication: JUVENILE ARTHRITIS
     Dosage: 25 MG, 2 IN 1 WEEKS, SC
     Route: 058
     Dates: start: 20040811, end: 20040826
  2. ROFECOXIB [Concomitant]
  3. ACETAMINOPHEN [Concomitant]
  4. AMITRIPTYLINE [Concomitant]
  5. PREDNISONE [Concomitant]

REACTIONS (6)
  - CHEST PAIN [None]
  - DYSPNOEA [None]
  - FACE OEDEMA [None]
  - HYPERSENSITIVITY [None]
  - SPEECH DISORDER [None]
  - SWOLLEN TONGUE [None]
